FAERS Safety Report 8328384-2 (Version None)
Quarter: 2012Q2

REPORT INFORMATION
  Report Type: 
  Country: None (occurrence: None)
  Receive Date: 20120502
  Receipt Date: 20120423
  Transmission Date: 20120825
  Serious: Yes (Hospitalization)
  Sender: FDA-Public Use
  Company Number: US-BAYER-2012-018294

PATIENT
  Age: 19 Year
  Sex: Female
  Weight: 63.492 kg

DRUGS (3)
  1. SPRINTEC [Concomitant]
     Indication: PREMENSTRUAL SYNDROME
     Dosage: UNK
     Dates: start: 20090801
  2. DROSPIRENONE AND ETHINYL ESTRADIOL [Suspect]
     Indication: PREMENSTRUAL SYNDROME
     Dosage: UNK
     Dates: start: 20081001, end: 20090801
  3. TYLENOL (CAPLET) [Concomitant]
     Dosage: UNK UNK, PRN

REACTIONS (7)
  - DEPRESSION [None]
  - PAIN [None]
  - ABDOMINAL DISCOMFORT [None]
  - CHOLECYSTITIS CHRONIC [None]
  - DIARRHOEA [None]
  - ABDOMINAL PAIN [None]
  - ANXIETY [None]
